FAERS Safety Report 26012048 (Version 1)
Quarter: 2025Q4

REPORT INFORMATION
  Report Type: Spontaneous
  Country: US (occurrence: US)
  Receive Date: 20251107
  Receipt Date: 20251107
  Transmission Date: 20260118
  Serious: Yes (Life-Threatening, Hospitalization, Other)
  Sender: AMGEN
  Company Number: US-AMGEN-USASP2025215548

PATIENT
  Age: 73 Year
  Sex: Female

DRUGS (3)
  1. PREDNISONE [Suspect]
     Active Substance: PREDNISONE
     Indication: Giant cell arteritis
     Dosage: UNK
     Route: 065
  2. TOCILIZUMAB [Suspect]
     Active Substance: TOCILIZUMAB
     Indication: Giant cell arteritis
     Dosage: UNK
     Route: 065
  3. APIXABAN [Concomitant]
     Active Substance: APIXABAN
     Indication: Deep vein thrombosis

REACTIONS (14)
  - Cardiac pseudoaneurysm [Recovered/Resolved]
  - Post procedural haemorrhage [Recovered/Resolved]
  - Vascular pseudoaneurysm [Unknown]
  - Endocarditis enterococcal [Unknown]
  - Mitral valve incompetence [Unknown]
  - Aortic valve incompetence [Unknown]
  - Atrial fibrillation [Recovered/Resolved]
  - Cardiac failure [Unknown]
  - Pleural effusion [Unknown]
  - Prosthetic cardiac valve regurgitation [Unknown]
  - Nodal rhythm [Unknown]
  - Stress cardiomyopathy [Recovered/Resolved]
  - Pulmonary oedema [Unknown]
  - Off label use [Unknown]
